FAERS Safety Report 4637849-6 (Version None)
Quarter: 2005Q2

REPORT INFORMATION
  Report Type: 
  Country: None (occurrence: None)
  Receive Date: 20050328
  Receipt Date: 20041230
  Transmission Date: 20051028
  Serious: No
  Sender: FDA-Public Use
  Company Number: USA050187225

PATIENT
  Age: 32 Year
  Sex: Male
  Weight: 73 kg

DRUGS (4)
  1. STRATTERA [Suspect]
     Indication: ATTENTION DEFICIT/HYPERACTIVITY DISORDER
     Dosage: 80 MG DAY
     Dates: start: 20041112, end: 20041228
  2. FLUOXETINE [Concomitant]
  3. CONCERTA [Concomitant]
  4. CELEXA [Concomitant]

REACTIONS (4)
  - EJACULATION DISORDER [None]
  - PARAESTHESIA [None]
  - TESTICULAR PAIN [None]
  - TESTICULAR SWELLING [None]
